FAERS Safety Report 24829318 (Version 1)
Quarter: 2025Q1

REPORT INFORMATION
  Report Type: Report from Study
  Country: US (occurrence: US)
  Receive Date: 20250110
  Receipt Date: 20250110
  Transmission Date: 20250409
  Serious: Yes (Death, Other)
  Sender: ACADIA PHARMACEUTICALS
  Company Number: US-ACADIA PHARMACEUTICALS INC.-ACA-2025-PIM-000251

PATIENT
  Age: 74 Year
  Sex: Male

DRUGS (10)
  1. NUPLAZID [Suspect]
     Active Substance: PIMAVANSERIN TARTRATE
     Indication: Parkinson^s disease
     Dosage: 34 MILLIGRAM, QD
     Route: 048
     Dates: start: 202404
  2. IPRATROPIUM [Concomitant]
     Active Substance: IPRATROPIUM
  3. ALBUTEROL [Concomitant]
     Active Substance: ALBUTEROL
  4. CLONAZEPAM [Concomitant]
     Active Substance: CLONAZEPAM
  5. BUPROPION [Concomitant]
     Active Substance: BUPROPION
  6. ASPIRIN [Concomitant]
     Active Substance: ASPIRIN
  7. ALENDRONATE SODIUM [Concomitant]
     Active Substance: ALENDRONATE SODIUM
  8. CARBIDOPA LEVODOPA [Concomitant]
     Active Substance: CARBIDOPA\LEVODOPA
  9. MUCINEX DM [Concomitant]
     Active Substance: DEXTROMETHORPHAN HYDROBROMIDE\GUAIFENESIN
  10. LEVOTHYROXINE SODIUM [Concomitant]
     Active Substance: LEVOTHYROXINE SODIUM

REACTIONS (1)
  - Death [Fatal]

NARRATIVE: CASE EVENT DATE: 20241216
